FAERS Safety Report 6454151-0 (Version None)
Quarter: 2009Q4

REPORT INFORMATION
  Report Type: 
  Country: None (occurrence: None)
  Receive Date: 20091124
  Receipt Date: 20091002
  Transmission Date: 20100525
  Serious: Yes (Hospitalization)
  Sender: FDA-Public Use
  Company Number: DE-MERCK-0910DEU00011

PATIENT
  Age: 79 Year
  Sex: Female
  Weight: 43 kg

DRUGS (11)
  1. HYZAAR [Suspect]
     Indication: HYPERTENSION
     Route: 048
  2. IBUPROFEN [Suspect]
     Indication: PAIN
     Route: 048
     Dates: start: 20090501
  3. HYDROMORPHONE HYDROCHLORIDE [Suspect]
     Indication: PAIN
     Route: 048
     Dates: start: 20090501, end: 20090824
  4. HYDROMORPHONE HYDROCHLORIDE [Suspect]
     Route: 048
     Dates: start: 20090501, end: 20090826
  5. CELECOXIB [Concomitant]
     Indication: PAIN
     Route: 048
     Dates: start: 20080101, end: 20090826
  6. DOMPERIDONE [Concomitant]
     Indication: NAUSEA
     Route: 048
     Dates: start: 20090501
  7. PHENPROCOUMON [Concomitant]
     Indication: ATRIAL FIBRILLATION
     Route: 048
     Dates: end: 20090826
  8. PHENPROCOUMON [Concomitant]
     Route: 048
     Dates: end: 20090826
  9. PANTOPRAZOLE [Concomitant]
     Indication: PROPHYLAXIS AGAINST GASTROINTESTINAL ULCER
     Route: 048
     Dates: start: 20080101
  10. PENTAERYTHRITOL TETRANITRATE [Concomitant]
     Indication: CORONARY ARTERY DISEASE
     Route: 048
  11. HYDROCHLOROTHIAZIDE AND VERAPAMIL HYDROCHLORIDE [Suspect]
     Indication: ATRIAL FIBRILLATION
     Route: 048
     Dates: start: 20070101

REACTIONS (1)
  - FAECALOMA [None]
